FAERS Safety Report 19530726 (Version 2)
Quarter: 2021Q3

REPORT INFORMATION
  Report Type: Report from Study
  Country: TW (occurrence: TW)
  Receive Date: 20210713
  Receipt Date: 20210811
  Transmission Date: 20211014
  Serious: Yes (Death, Other)
  Sender: FDA-Public Use
  Company Number: TW-BAYER-2021-172564

PATIENT
  Age: 76 Year
  Sex: Male

DRUGS (1)
  1. ADEMPAS [Suspect]
     Active Substance: RIOCIGUAT
     Indication: PULMONARY ARTERIAL HYPERTENSION
     Dosage: 2.5 MG, TID
     Route: 048
     Dates: end: 20210708

REACTIONS (5)
  - Oxygen saturation decreased [None]
  - Death [Fatal]
  - Product prescribing issue [None]
  - Loss of consciousness [None]
  - Incorrect dose administered [None]

NARRATIVE: CASE EVENT DATE: 202107
